FAERS Safety Report 21337261 (Version 2)
Quarter: 2022Q4

REPORT INFORMATION
  Report Type: Report from Study
  Country: US (occurrence: US)
  Receive Date: 20220915
  Receipt Date: 20221004
  Transmission Date: 20230113
  Serious: Yes (Hospitalization, Other)
  Sender: FDA-Public Use
  Company Number: US-BAYER-2022A115848

PATIENT
  Age: 69 Year
  Sex: Male

DRUGS (2)
  1. NEXAVAR [Suspect]
     Active Substance: SORAFENIB
     Indication: Hepatocellular carcinoma
     Dosage: 200 MG, BID
     Route: 048
     Dates: start: 20220719
  2. NEXAVAR [Suspect]
     Active Substance: SORAFENIB
     Indication: Hepatocellular carcinoma
     Dosage: 200 MG, BID
     Route: 048
     Dates: start: 20220816

REACTIONS (12)
  - Bone neoplasm [Recovering/Resolving]
  - Malaise [Recovering/Resolving]
  - Mobility decreased [Recovering/Resolving]
  - Benign neoplasm [None]
  - Throat lesion [Recovering/Resolving]
  - Dysphagia [Recovered/Resolved]
  - Dehydration [Recovered/Resolved]
  - Gait disturbance [None]
  - Diarrhoea [Unknown]
  - Dehydration [Unknown]
  - Off label use [None]
  - Dysphonia [None]

NARRATIVE: CASE EVENT DATE: 20220701
